FAERS Safety Report 13616207 (Version 1)
Quarter: 2017Q2

REPORT INFORMATION
  Report Type: Spontaneous
  Country: US (occurrence: US)
  Receive Date: 20170606
  Receipt Date: 20170606
  Transmission Date: 20170830
  Serious: No
  Sender: FDA-Public Use
  Company Number: US-BAYER-2017-106798

PATIENT
  Age: 35 Year
  Sex: Female

DRUGS (13)
  1. MONODOX [Concomitant]
     Active Substance: DOXYCYCLINE
     Dosage: 2 DF, QD
     Dates: start: 20170417
  2. NORCO [Concomitant]
     Active Substance: ACETAMINOPHEN\HYDROCODONE BITARTRATE
     Indication: PAIN
     Dosage: 1 DF, UNK (EVERY 6 HRS)
  3. POTASSIUM CHLORIDE. [Concomitant]
     Active Substance: POTASSIUM CHLORIDE
     Dosage: 1 DF, BID
     Route: 048
     Dates: start: 20170303
  4. HYDRODIURIL [Concomitant]
     Active Substance: HYDROCHLOROTHIAZIDE
     Dosage: 2 DF, QD
     Route: 048
     Dates: start: 20170418
  5. TRENTAL [Concomitant]
     Active Substance: PENTOXIFYLLINE
     Dosage: 1 DF, TID
     Route: 048
     Dates: start: 20170303
  6. ZOCOR [Concomitant]
     Active Substance: SIMVASTATIN
     Dosage: 1 DF, UNK (NIGHTLY)
     Dates: start: 20170303
  7. ALEVE [Suspect]
     Active Substance: NAPROXEN SODIUM
     Dosage: UNK
  8. LYRICA [Concomitant]
     Active Substance: PREGABALIN
     Dosage: 1 DF, BID
     Route: 048
  9. INSULIN [Concomitant]
     Active Substance: INSULIN NOS
     Dosage: 100 U, BID
     Dates: start: 20170303
  10. FLEXERIL [Concomitant]
     Active Substance: CYCLOBENZAPRINE HYDROCHLORIDE
     Indication: MUSCLE SPASMS
     Dosage: 1 DF, TID
     Dates: start: 20170303
  11. VALIUM [Concomitant]
     Active Substance: DIAZEPAM
     Indication: ANXIETY
     Dosage: 1 DF, TID
     Route: 048
     Dates: start: 20170331
  12. SYMBICORT [Concomitant]
     Active Substance: BUDESONIDE\FORMOTEROL FUMARATE DIHYDRATE
     Dosage: 2 DF, BID (2 PUFFS)
     Dates: start: 20170309
  13. LOSARTAN. [Concomitant]
     Active Substance: LOSARTAN
     Dosage: 1 DF, QD
     Dates: start: 20170303

REACTIONS (2)
  - Urticaria [Unknown]
  - Drug hypersensitivity [Unknown]

NARRATIVE: CASE EVENT DATE: 20140309
